FAERS Safety Report 7346141-0 (Version None)
Quarter: 2011Q1

REPORT INFORMATION
  Report Type: 
  Country: None (occurrence: None)
  Receive Date: 20110311
  Receipt Date: 20100908
  Transmission Date: 20110831
  Serious: Yes (Hospitalization)
  Sender: FDA-Public Use
  Company Number: US-BAYER-200943710NA

PATIENT
  Sex: Female
  Weight: 91 kg

DRUGS (8)
  1. XOPENEX [Concomitant]
     Indication: WHEEZING
  2. YAZ [Suspect]
     Dosage: UNK
     Dates: start: 20090508, end: 20090926
  3. IBUPROFEN [Concomitant]
     Dosage: UNK
     Dates: start: 20090801
  4. ACETAMINOPHEN [Concomitant]
     Indication: TOOTHACHE
     Dosage: 500 MG, BID
     Route: 048
     Dates: start: 20090827, end: 20090827
  5. CITALOPRAM [Concomitant]
     Indication: DEPRESSION
     Dosage: 20 MG, QD
     Route: 048
     Dates: start: 20090101, end: 20090101
  6. XOPENEX [Concomitant]
     Indication: COUGH
     Dosage: 2 PUFF(S), QID
     Route: 045
     Dates: start: 20050101
  7. CEFPROZIL [Concomitant]
     Indication: PNEUMONIA
     Dosage: 500 MG, BID
     Route: 048
     Dates: start: 20090604, end: 20090922
  8. PROVENTIL [Concomitant]
     Indication: ASTHMA
     Dosage: 90 UNK, UNK
     Dates: start: 20040101

REACTIONS (5)
  - LUNG DISORDER [None]
  - HAEMATURIA [None]
  - PULMONARY EMBOLISM [None]
  - MUSCULOSKELETAL CHEST PAIN [None]
  - PLEURITIC PAIN [None]
